FAERS Safety Report 10173509 (Version 1)
Quarter: 2014Q2

REPORT INFORMATION
  Report Type: Spontaneous
  Country: US (occurrence: None)
  Receive Date: 20140416
  Receipt Date: 20140416
  Transmission Date: 20141212
  Serious: Yes (Other)
  Sender: FDA-Public Use
  Company Number: 163-POMAL-14013444

PATIENT
  Sex: 0

DRUGS (3)
  1. POMALYST (POMALIDOMIDE) (CAPSULES) [Suspect]
     Indication: PRODUCT USED FOR UNKNOWN INDICATION
     Route: 048
  2. BORTEZOMIB (BORTEZOMIB) (UNKNOWN) [Suspect]
     Indication: PRODUCT USED FOR UNKNOWN INDICATION
  3. DEXAMETHASONE (DEXAMETHASONE) (UNKNOWN) [Suspect]
     Indication: PRODUCT USED FOR UNKNOWN INDICATION

REACTIONS (1)
  - Anaphylactic reaction [None]
